FAERS Safety Report 11294273 (Version 1)
Quarter: 2015Q3

REPORT INFORMATION
  Report Type: Spontaneous
  Country: US (occurrence: US)
  Receive Date: 20150722
  Receipt Date: 20150722
  Transmission Date: 20151125
  Serious: No
  Sender: FDA-Public Use
  Company Number: US-ELI_LILLY_AND_COMPANY-US200801004795

PATIENT
  Age: 73 Year
  Sex: Female

DRUGS (2)
  1. EVISTA [Suspect]
     Active Substance: RALOXIFENE HYDROCHLORIDE
     Dosage: 60 MG, DAILY (1/D)
     Dates: start: 20060427
  2. EVISTA [Suspect]
     Active Substance: RALOXIFENE HYDROCHLORIDE
     Indication: OSTEOPOROSIS
     Dosage: 60 MG, DAILY (1/D)
     Dates: start: 19990628, end: 2002

REACTIONS (7)
  - Red blood cell count decreased [Unknown]
  - Hypertension [Unknown]
  - Mean cell haemoglobin concentration increased [Unknown]
  - Osteoarthritis [Unknown]
  - Urinary incontinence [Unknown]
  - Musculoskeletal pain [Unknown]
  - Vulvovaginal pruritus [Unknown]

NARRATIVE: CASE EVENT DATE: 20070914
